FAERS Safety Report 12476880 (Version 1)
Quarter: 2016Q2

REPORT INFORMATION
  Report Type: Spontaneous
  Country: US (occurrence: US)
  Receive Date: 20160617
  Receipt Date: 20160617
  Transmission Date: 20160815
  Serious: Yes (Other)
  Sender: FDA-Public Use
  Company Number: US-STANDARD HOMEOPATHIC COMPANY-1053935

PATIENT
  Sex: Female

DRUGS (4)
  1. BIOPLASMA [Suspect]
     Active Substance: HOMEOPATHICS
     Indication: FATIGUE
     Route: 048
     Dates: start: 2013
  2. BIOPLASMA [Suspect]
     Active Substance: HOMEOPATHICS
     Indication: HEADACHE
     Route: 048
     Dates: start: 2013
  3. BIOPLASMA [Suspect]
     Active Substance: HOMEOPATHICS
     Indication: NASOPHARYNGITIS
     Route: 048
     Dates: start: 2013
  4. BIOPLASMA [Suspect]
     Active Substance: HOMEOPATHICS
     Indication: TENSION
     Route: 048
     Dates: start: 2013

REACTIONS (1)
  - Thrombocytosis [Unknown]

NARRATIVE: CASE EVENT DATE: 2013
